FAERS Safety Report 19720535 (Version 2)
Quarter: 2021Q3

REPORT INFORMATION
  Report Type: Spontaneous
  Country: US (occurrence: US)
  Receive Date: 20210819
  Receipt Date: 20210913
  Transmission Date: 20211014
  Serious: Yes (Death, Other)
  Sender: FDA-Public Use
  Company Number: US-BRISTOL-MYERS SQUIBB COMPANY-BMS-2021-081995

PATIENT
  Age: 69 Year
  Sex: Female

DRUGS (2)
  1. SPRYCEL [Suspect]
     Active Substance: DASATINIB
     Indication: PHILADELPHIA POSITIVE ACUTE LYMPHOCYTIC LEUKAEMIA
     Dosage: UNK
     Route: 065
     Dates: start: 20180925
  2. SPRYCEL [Suspect]
     Active Substance: DASATINIB
     Dosage: 25 MILLIGRAM, QD
     Route: 048
     Dates: end: 20210108

REACTIONS (3)
  - Pneumonia [Fatal]
  - Neutropenic sepsis [Fatal]
  - Acute lymphocytic leukaemia recurrent [Unknown]
